FAERS Safety Report 8927995 (Version 1)
Quarter: 2012Q4

REPORT INFORMATION
  Report Type: Spontaneous
  Country: US (occurrence: None)
  Receive Date: 20121126
  Receipt Date: 20121126
  Transmission Date: 20130627
  Serious: No
  Sender: FDA-Public Use
  Company Number: None

PATIENT
  Age: 22 Year
  Sex: Female

DRUGS (1)
  1. ZIPRUSIDONE 80 MG CAPSULES DR. REDDY^S [Suspect]
     Indication: SCHIZOAFFECTIVE  DISORDER

REACTIONS (1)
  - Treatment failure [None]
